FAERS Safety Report 19467037 (Version 4)
Quarter: 2021Q3

REPORT INFORMATION
  Report Type: Spontaneous
  Country: DK (occurrence: DK)
  Receive Date: 20210628
  Receipt Date: 20210811
  Transmission Date: 20211014
  Serious: Yes (Hospitalization, Other)
  Sender: FDA-Public Use
  Company Number: DK-AUROBINDO-AUR-APL-2021-025269

PATIENT
  Age: 66 Year
  Sex: Female

DRUGS (1)
  1. ALENDRONIC ACID TABLETS [Suspect]
     Active Substance: ALENDRONIC ACID
     Indication: OSTEOPOROSIS
     Dosage: 70 MILLIGRAM, EVERY WEEK
     Route: 048
     Dates: start: 2009, end: 20140801

REACTIONS (2)
  - Weight decreased [Recovered/Resolved]
  - Osteonecrosis of jaw [Recovered/Resolved]
